FAERS Safety Report 9450946 (Version 1)
Quarter: 2013Q3

REPORT INFORMATION
  Report Type: Spontaneous
  Country: US (occurrence: US)
  Receive Date: 20130809
  Receipt Date: 20130809
  Transmission Date: 20140515
  Serious: No
  Sender: FDA-Public Use
  Company Number: US-009507513-1308USA000357

PATIENT
  Age: 55 Year
  Sex: Male

DRUGS (2)
  1. NASONEX [Suspect]
     Indication: SEASONAL ALLERGY
     Dosage: 2 SPRAYS IN EACH NOSTRIL, QD
     Route: 045
     Dates: start: 20130404
  2. NASONEX [Suspect]
     Indication: PROPHYLAXIS

REACTIONS (2)
  - Extra dose administered [Unknown]
  - Product cleaning inadequate [Unknown]
